FAERS Safety Report 8425790-2 (Version None)
Quarter: 2012Q2

REPORT INFORMATION
  Report Type: 
  Country: None (occurrence: None)
  Receive Date: 20120611
  Receipt Date: 20120604
  Transmission Date: 20120825
  Serious: No
  Sender: FDA-Public Use
  Company Number: US-PFIZER INC-2012133807

PATIENT
  Sex: Female

DRUGS (3)
  1. DAYPRO [Suspect]
  2. NEURONTIN [Suspect]
  3. PROTONIX [Suspect]
     Dosage: UNK

REACTIONS (1)
  - BLOOD GLUCOSE ABNORMAL [None]
